FAERS Safety Report 9173594 (Version 1)
Quarter: 2013Q1

REPORT INFORMATION
  Report Type: Spontaneous
  Country: US (occurrence: None)
  Receive Date: 20130314
  Receipt Date: 20130314
  Transmission Date: 20140127
  Serious: Yes (Death, Other)
  Sender: FDA-Public Use
  Company Number: GB-DEXPHARM-20130084

PATIENT
  Sex: 0

DRUGS (2)
  1. OMEPRAZOLE [Suspect]
     Route: 064
  2. GAVISCON [Concomitant]

REACTIONS (3)
  - Stillbirth [None]
  - Foetal exposure during pregnancy [None]
  - Foetal death [None]
